FAERS Safety Report 7232936-0 (Version None)
Quarter: 2011Q1

REPORT INFORMATION
  Report Type: 
  Country: None (occurrence: None)
  Receive Date: 20110119
  Receipt Date: 20110113
  Transmission Date: 20110831
  Serious: Yes (Death)
  Sender: FDA-Public Use
  Company Number: TR-CELGENEUS-161-C5013-11011279

PATIENT
  Sex: Female
  Weight: 50 kg

DRUGS (1)
  1. CC-5013 [Suspect]
     Route: 048
     Dates: start: 20100820

REACTIONS (2)
  - RESPIRATORY FAILURE [None]
  - PNEUMONIA [None]
